FAERS Safety Report 13313905 (Version 1)
Quarter: 2017Q1

REPORT INFORMATION
  Report Type: Spontaneous
  Country: US (occurrence: US)
  Receive Date: 20170309
  Receipt Date: 20170309
  Transmission Date: 20170428
  Serious: No
  Sender: FDA-Public Use
  Company Number: US-ALK ABELLO INC-1064079

PATIENT
  Sex: Male

DRUGS (4)
  1. ASPERGILLUS FUMIGATUS. [Suspect]
     Active Substance: ASPERGILLUS FUMIGATUS
     Indication: IMMUNE SYSTEM DISORDER
     Route: 058
     Dates: start: 20161110, end: 20161221
  2. EPICOCCUM [Concomitant]
     Active Substance: EPICOCCUM NIGRUM
     Route: 058
  3. CURVULARIA [Concomitant]
     Active Substance: COCHLIOBOLUS SPICIFER
     Route: 058
  4. PENICILLIUM [Concomitant]
     Active Substance: PENICILLIUM CHRYSOGENUM VAR. CHRYSOGENUM
     Route: 058

REACTIONS (3)
  - Erythema [None]
  - Skin lesion [None]
  - Rash [None]
